FAERS Safety Report 8425227-3 (Version None)
Quarter: 2012Q2

REPORT INFORMATION
  Report Type: 
  Country: None (occurrence: None)
  Receive Date: 20120605
  Receipt Date: 20120523
  Transmission Date: 20120825
  Serious: Yes (Disabling)
  Sender: FDA-Public Use
  Company Number: GER/UKI/12/0024443

PATIENT
  Age: 67 Year
  Sex: Male
  Weight: 75.2 kg

DRUGS (13)
  1. CLOPIDEGREL [Suspect]
     Indication: PRODUCT USED FOR UNKNOWN INDICATION
     Dates: start: 20120220
  2. DESMOPRESSIN ACETATE [Concomitant]
  3. ACETAMINOPHEN [Concomitant]
  4. PERSANTIN [Concomitant]
  5. ATORVASTATIN [Concomitant]
  6. CITALOPRAM HYDROBROMIDE [Concomitant]
  7. ASPIRIN [Concomitant]
  8. BETAHISTINE (BETAHISTINE) [Concomitant]
  9. SERETIDE (SERETIDE) [Concomitant]
  10. FOLIC ACID [Concomitant]
  11. LAMOTRIGINE [Concomitant]
  12. CALCICHEW D3 (LEKOVIT CA) [Concomitant]
  13. OMEPRAZOLE [Concomitant]

REACTIONS (2)
  - CONVULSION [None]
  - DROP ATTACKS [None]
